FAERS Safety Report 10111728 (Version 1)
Quarter: 2014Q2

REPORT INFORMATION
  Report Type: Spontaneous
  Country: GB (occurrence: GB)
  Receive Date: 20140425
  Receipt Date: 20140425
  Transmission Date: 20141212
  Serious: Yes (Other)
  Sender: FDA-Public Use
  Company Number: GB-ASTRAZENECA-2014SE26932

PATIENT
  Sex: Female

DRUGS (2)
  1. BRILIQUE [Suspect]
     Route: 048
  2. CONCOMITANT DRUG MEDICATION [Concomitant]

REACTIONS (2)
  - Dysphagia [Not Recovered/Not Resolved]
  - Circumstance or information capable of leading to medication error [Unknown]
